FAERS Safety Report 10068087 (Version 2)
Quarter: 2014Q2

REPORT INFORMATION
  Report Type: Spontaneous
  Country: JP (occurrence: JP)
  Receive Date: 20140409
  Receipt Date: 20140430
  Transmission Date: 20141212
  Serious: Yes (Death, Other)
  Sender: FDA-Public Use
  Company Number: JP-JNJFOC-20140402230

PATIENT
  Age: 45 Year
  Sex: Male

DRUGS (14)
  1. XEPLION [Suspect]
     Indication: SCHIZOPHRENIA
     Route: 030
     Dates: start: 20131121, end: 20140313
  2. LONASEN [Concomitant]
     Indication: SCHIZOPHRENIA
     Route: 048
     Dates: start: 20091208
  3. HALCION [Concomitant]
     Indication: INSOMNIA
     Route: 048
     Dates: start: 20111101
  4. DORAL [Concomitant]
     Indication: INSOMNIA
     Route: 048
     Dates: start: 20110301
  5. LEVOTOMIN [Concomitant]
     Indication: INSOMNIA
     Route: 048
     Dates: start: 19990202
  6. EURODIN [Concomitant]
     Indication: INSOMNIA
     Route: 048
     Dates: start: 19981130
  7. ROHYPNOL [Concomitant]
     Indication: INSOMNIA
     Route: 048
     Dates: start: 19990202
  8. SEROQUEL [Concomitant]
     Indication: INSOMNIA
     Route: 048
     Dates: start: 20110510
  9. SOLANAX [Concomitant]
     Indication: IRRITABILITY
     Dosage: P.R.N, 0.4-1.2MG
     Route: 048
     Dates: start: 20100803
  10. SOLANAX [Concomitant]
     Indication: ANXIETY
     Dosage: P.R.N, 0.4-1.2MG
     Route: 048
     Dates: start: 20100803
  11. SOLANAX [Concomitant]
     Indication: INSOMNIA
     Dosage: P.R.N, 0.4-1.2MG
     Route: 048
     Dates: start: 20100803
  12. CONTOMIN [Concomitant]
     Indication: IRRITABILITY
     Dosage: P.R.N, 25MG
     Route: 048
     Dates: start: 20100803
  13. CONTOMIN [Concomitant]
     Indication: ANXIETY
     Dosage: P.R.N, 25MG
     Route: 048
     Dates: start: 20100803
  14. CONTOMIN [Concomitant]
     Indication: INSOMNIA
     Dosage: P.R.N, 25MG
     Route: 048
     Dates: start: 20100803

REACTIONS (2)
  - Obstructive airways disorder [Fatal]
  - Aspiration [Not Recovered/Not Resolved]
